FAERS Safety Report 26209389 (Version 1)
Quarter: 2025Q4

REPORT INFORMATION
  Report Type: Spontaneous
  Country: CN (occurrence: CN)
  Receive Date: 20251229
  Receipt Date: 20251229
  Transmission Date: 20260117
  Serious: Yes (Other)
  Sender: PFIZER
  Company Number: CN-PFIZER INC-PV202500148601

PATIENT
  Age: 60 Year
  Sex: Male
  Weight: 65 kg

DRUGS (1)
  1. INLYTA [Suspect]
     Active Substance: AXITINIB
     Indication: Targeted cancer therapy
     Dosage: 5 MG, 2X/DAY
     Route: 048
     Dates: start: 20240716, end: 20251210

REACTIONS (1)
  - Secondary hypertension [Recovering/Resolving]

NARRATIVE: CASE EVENT DATE: 20251208
